FAERS Safety Report 9821016 (Version 2)
Quarter: 2014Q1

REPORT INFORMATION
  Report Type: Spontaneous
  Country: DK (occurrence: GB)
  Receive Date: 20140116
  Receipt Date: 20140331
  Transmission Date: 20141002
  Serious: Yes (Death)
  Sender: FDA-Public Use
  Company Number: GB-FRI-1000052857

PATIENT
  Age: 23 Year
  Sex: Female
  Weight: 74.2 kg

DRUGS (4)
  1. CITALOPRAM [Suspect]
     Indication: DEPRESSION
     Dosage: 10 MG
     Route: 048
     Dates: start: 20131014, end: 20131022
  2. AMITRIPTYLINE [Concomitant]
     Indication: IRRITABLE BOWEL SYNDROME
     Dosage: 30 MG
     Route: 048
     Dates: start: 200810
  3. SERTRALINE [Concomitant]
     Indication: DEPRESSION
     Route: 048
     Dates: start: 20130924
  4. YASMIN [Concomitant]
     Indication: ORAL CONTRACEPTION
     Dosage: 1 DF
     Route: 048
     Dates: start: 2008

REACTIONS (1)
  - Completed suicide [Fatal]
